FAERS Safety Report 5056114-9 (Version None)
Quarter: 2006Q3

REPORT INFORMATION
  Report Type: 
  Country: None (occurrence: None)
  Receive Date: 20060720
  Receipt Date: 20050509
  Transmission Date: 20061208
  Serious: Yes (Other)
  Sender: FDA-Public Use
  Company Number: US-GLAXOSMITHKLINE-A0558603A

PATIENT
  Age: 32 Year
  Sex: Male

DRUGS (5)
  1. PAXIL [Suspect]
     Indication: ANXIETY
     Route: 048
     Dates: start: 19970501
  2. PAXIL CR [Suspect]
     Indication: ANXIETY
     Dosage: 37.5MG PER DAY
     Route: 048
     Dates: start: 20051230
  3. PAROXETINE HCL [Suspect]
     Indication: ANXIETY
     Dosage: 40MG UNKNOWN
     Route: 048
  4. BUSPIRONE HCL [Concomitant]
  5. VALTREX [Concomitant]

REACTIONS (17)
  - ANXIETY [None]
  - CRYING [None]
  - DEPRESSION [None]
  - DISSOCIATION [None]
  - DRUG DEPENDENCE [None]
  - DRUG WITHDRAWAL SYNDROME [None]
  - DRY MOUTH [None]
  - ERECTILE DYSFUNCTION [None]
  - HOMICIDAL IDEATION [None]
  - IMPULSIVE BEHAVIOUR [None]
  - INSOMNIA [None]
  - IRRITABILITY [None]
  - PSYCHOMOTOR HYPERACTIVITY [None]
  - SEXUAL DYSFUNCTION [None]
  - SUICIDAL IDEATION [None]
  - TEARFULNESS [None]
  - WEIGHT INCREASED [None]
